FAERS Safety Report 12457118 (Version 1)
Quarter: 2016Q2

REPORT INFORMATION
  Report Type: Report from Study
  Country: BR (occurrence: BR)
  Receive Date: 20160610
  Receipt Date: 20160610
  Transmission Date: 20160815
  Serious: Yes (Hospitalization)
  Sender: FDA-Public Use
  Company Number: PHHY2016BR079952

PATIENT
  Sex: Male
  Weight: 53 kg

DRUGS (1)
  1. DIOVAN HCT [Suspect]
     Active Substance: HYDROCHLOROTHIAZIDE\VALSARTAN
     Indication: HYPERTENSION
     Dosage: 1 DF (HYDROCHLOROTHIAZIDE 25MG, VALSARTAN 320 MG), QD (IN MORNING)
     Route: 048

REACTIONS (2)
  - Pneumonia [Recovered/Resolved with Sequelae]
  - Chronic obstructive pulmonary disease [Unknown]
